FAERS Safety Report 5022833-3 (Version None)
Quarter: 2006Q2

REPORT INFORMATION
  Report Type: 
  Country: None (occurrence: None)
  Receive Date: 20060426
  Receipt Date: 20060228
  Transmission Date: 20061013
  Serious: Yes (Other)
  Sender: FDA-Public Use
  Company Number: 2006031593

PATIENT
  Sex: Male

DRUGS (12)
  1. LYRICA [Suspect]
     Indication: ILL-DEFINED DISORDER
     Dosage: 75 MG (75 MG, 1 IN 1 D)
     Dates: start: 20051206, end: 20060101
  2. MULTIVITAMIN [Concomitant]
  3. LASIX [Concomitant]
  4. ASPIRIN [Concomitant]
  5. VALSARTAN [Concomitant]
  6. LIPITOR [Concomitant]
  7. CARDURA [Concomitant]
  8. QUININE SULFATE [Concomitant]
  9. CALCIUM (CALCIUM) [Concomitant]
  10. CYCLOSPORINE [Concomitant]
  11. AZATHIOPRINE [Concomitant]
  12. INSULIN [Concomitant]

REACTIONS (6)
  - CELLULITIS [None]
  - FEELING JITTERY [None]
  - GINGIVAL PAIN [None]
  - HYPERGLYCAEMIA [None]
  - OEDEMA PERIPHERAL [None]
  - ORAL MUCOSAL BLISTERING [None]
